FAERS Safety Report 7606205-0 (Version None)
Quarter: 2011Q3

REPORT INFORMATION
  Report Type: 
  Country: None (occurrence: None)
  Receive Date: 20110713
  Receipt Date: 20110627
  Transmission Date: 20111222
  Serious: Yes (Hospitalization)
  Sender: FDA-Public Use
  Company Number: US-BAYER-201026875NA

PATIENT
  Age: 38 Year
  Sex: Female
  Weight: 83.9 kg

DRUGS (4)
  1. YAZ [Suspect]
     Indication: PRODUCT USED FOR UNKNOWN INDICATION
     Dosage: UNK
     Route: 048
     Dates: start: 20080101
  2. ZYRTEC [Concomitant]
     Dosage: UNK UNK, QD
     Route: 048
  3. CENTRUM [Concomitant]
     Dosage: UNK UNK, QD
     Route: 048
     Dates: end: 20080511
  4. MOTRIN [Concomitant]
     Dosage: 600 MG, BID
     Route: 048
     Dates: end: 20080511

REACTIONS (2)
  - DEEP VEIN THROMBOSIS [None]
  - PULMONARY EMBOLISM [None]
